FAERS Safety Report 7400305-6 (Version None)
Quarter: 2011Q2

REPORT INFORMATION
  Report Type: 
  Country: None (occurrence: None)
  Receive Date: 20110407
  Receipt Date: 20110404
  Transmission Date: 20111010
  Serious: Yes (Life-Threatening, Hospitalization, Other)
  Sender: FDA-Public Use
  Company Number: DE-B.I. PHARMACEUTICALS,INC./RIDGEFIELD-2011-DE-00851DE

PATIENT
  Age: 58 Year
  Sex: Male
  Weight: 102 kg

DRUGS (4)
  1. PANTOPRAZOLE SODIUM [Concomitant]
     Dosage: 40 MG
     Route: 048
     Dates: start: 20000101
  2. MICARDIS HCT [Suspect]
     Indication: HYPERTENSION
     Dosage: 1 ANZ
     Route: 048
     Dates: start: 20100930, end: 20101107
  3. METOBETA [Concomitant]
     Dosage: 100 MG
     Route: 048
     Dates: start: 20100930, end: 20101107
  4. INEGY [Concomitant]
     Dosage: 1 ANZ
     Route: 048
     Dates: start: 20000101

REACTIONS (1)
  - RENAL FAILURE ACUTE [None]
